FAERS Safety Report 5788832-9 (Version None)
Quarter: 2008Q2

REPORT INFORMATION
  Report Type: 
  Country: None (occurrence: None)
  Receive Date: 20080626
  Receipt Date: 20080624
  Transmission Date: 20081010
  Serious: Yes (Other)
  Sender: FDA-Public Use
  Company Number: IN-RB-002075-08

PATIENT
  Age: 32 Year
  Sex: Female
  Weight: 55 kg

DRUGS (6)
  1. BUPRENORPHINE HCL [Suspect]
     Indication: ANALGESIA
     Route: 008
  2. BUPRENORPHINE HCL [Suspect]
     Dosage: DOSE FOR CONTINUOUS EPIDURAL INFUSION OF BUPRENORPHINE UNKNOWN.
     Route: 008
  3. BUPIVACAINE [Suspect]
     Indication: ANALGESIA
     Route: 008
  4. BUPIVACAINE [Suspect]
     Dosage: DOSEAGE OF BUPIVACAINE GIVEN DURING CONTINUOUS EPIDURAL INFUSION UNKNOWN.
     Route: 008
  5. METHYLPARABEN(BENZOIC ACID) [Suspect]
     Dosage: DOSE UNKNOWN
     Route: 008
  6. ISOFLURANE [Suspect]
     Indication: GENERAL ANAESTHESIA
     Dosage: DOSAGE UNKNOWN
     Route: 055

REACTIONS (8)
  - ASTHENIA [None]
  - DYSKINESIA [None]
  - HYPOTENSION [None]
  - ISCHAEMIA [None]
  - PARAESTHESIA [None]
  - PARAPARESIS [None]
  - SENSATION OF HEAVINESS [None]
  - THROMBOSIS [None]
